FAERS Safety Report 10137046 (Version 1)
Quarter: 2014Q2

REPORT INFORMATION
  Report Type: Spontaneous
  Country: US (occurrence: None)
  Receive Date: 20140428
  Receipt Date: 20140428
  Transmission Date: 20141212
  Serious: Yes (Disabling)
  Sender: FDA-Public Use
  Company Number: None

PATIENT
  Age: 58 Year
  Sex: Female
  Weight: 73.03 kg

DRUGS (1)
  1. PROLIA [Suspect]
     Indication: OSTEOPOROSIS
     Dosage: I INJECTION, EVERY SIX MONTHS, INTO THE MUSCLE

REACTIONS (16)
  - Myalgia [None]
  - Asthenia [None]
  - Malaise [None]
  - Back pain [None]
  - Muscular weakness [None]
  - Pain [None]
  - Pruritus generalised [None]
  - Dry skin [None]
  - Dry skin [None]
  - Rash [None]
  - Herpes zoster [None]
  - Chills [None]
  - Headache [None]
  - Movement disorder [None]
  - Feeling abnormal [None]
  - Injection site pruritus [None]
